FAERS Safety Report 6451991-9 (Version None)
Quarter: 2009Q4

REPORT INFORMATION
  Report Type: 
  Country: None (occurrence: None)
  Receive Date: 20091123
  Receipt Date: 20091120
  Transmission Date: 20100525
  Serious: Yes (Hospitalization)
  Sender: FDA-Public Use
  Company Number: US-B.I. PHARMACEUTICALS,INC./RIDGEFIELD-2009-BP-13524BP

PATIENT
  Age: 85 Year
  Sex: Female

DRUGS (9)
  1. COMBIVENT [Suspect]
     Indication: CHRONIC OBSTRUCTIVE PULMONARY DISEASE
     Dosage: 8 PUF
     Route: 055
     Dates: start: 20040101
  2. CUVAR [Concomitant]
     Indication: CHRONIC OBSTRUCTIVE PULMONARY DISEASE
  3. MEDICATION NOT OTHERWISE SPECIFIED [Concomitant]
     Indication: BLOOD PRESSURE INCREASED
  4. VITAMIN B COMPLEX CAP [Concomitant]
     Indication: PROPHYLAXIS
  5. NEXIUM [Concomitant]
     Indication: GASTROOESOPHAGEAL REFLUX DISEASE
  6. MYCILLIN [Concomitant]
     Indication: TREMOR
  7. MECLIZINE [Concomitant]
     Indication: VERTIGO
  8. ATIVAN [Concomitant]
     Indication: ANXIETY
  9. PAXIL [Concomitant]
     Indication: ANXIETY

REACTIONS (2)
  - ASTHENIA [None]
  - COLITIS ULCERATIVE [None]
